FAERS Safety Report 7522963-8 (Version None)
Quarter: 2011Q2

REPORT INFORMATION
  Report Type: 
  Country: None (occurrence: None)
  Receive Date: 20110603
  Receipt Date: 20110530
  Transmission Date: 20111010
  Serious: Yes (Other)
  Sender: FDA-Public Use
  Company Number: PL-BRISTOL-MYERS SQUIBB COMPANY-15789142

PATIENT
  Age: 21 Year
  Sex: Male

DRUGS (1)
  1. ABILIFY [Suspect]
     Indication: BIPOLAR DISORDER
     Dosage: FOR 4 DAYS,THEN 15 MG PER DAY(MORNING),DOSE INCD TO 22.5MG,30MG,6 WEEKS

REACTIONS (11)
  - SUICIDAL IDEATION [None]
  - FATIGUE [None]
  - AGITATION [None]
  - NIGHTMARE [None]
  - APATHY [None]
  - ANXIETY [None]
  - SOMNOLENCE [None]
  - MEMORY IMPAIRMENT [None]
  - MOOD ALTERED [None]
  - DELUSION [None]
  - DISTURBANCE IN ATTENTION [None]
